FAERS Safety Report 22597060 (Version 5)
Quarter: 2023Q2

REPORT INFORMATION
  Report Type: Report from Study
  Country: ES (occurrence: ES)
  Receive Date: 20230613
  Receipt Date: 20230629
  Transmission Date: 20230722
  Serious: Yes (Hospitalization)
  Sender: FDA-Public Use
  Company Number: ES-AMGEN-ESPCT2023100543

PATIENT
  Age: 65 Year
  Sex: Male
  Weight: 72 kg

DRUGS (33)
  1. BLINATUMOMAB [Suspect]
     Active Substance: BLINATUMOMAB
     Indication: Acute lymphocytic leukaemia
     Dosage: 1000 MICROGRAM
     Route: 058
     Dates: start: 20230522
  2. BLINATUMOMAB [Suspect]
     Active Substance: BLINATUMOMAB
     Dosage: 1000 MILLIGRAM
     Route: 058
     Dates: start: 20230612
  3. CYCLOPHOSPHAMIDE [Concomitant]
     Active Substance: CYCLOPHOSPHAMIDE
     Dosage: 200 MILLIGRAM
     Route: 042
     Dates: start: 20230517, end: 20230520
  4. ACYCLOVIR [Concomitant]
     Active Substance: ACYCLOVIR
     Dosage: 800 MILLIGRAM
     Route: 048
     Dates: start: 20230522, end: 20230609
  5. ALLOPURINOL [Concomitant]
     Active Substance: ALLOPURINOL
     Dosage: 300 MILLIGRAM
     Route: 048
     Dates: start: 20230526, end: 20230608
  6. AMLODIPINE [Concomitant]
     Active Substance: AMLODIPINE BESYLATE
     Dosage: 5 MILLIGRAM
     Route: 048
     Dates: start: 20230522, end: 20230526
  7. CALCIUM CARBONATE [Concomitant]
     Active Substance: CALCIUM CARBONATE
     Dosage: 1250 MILLIGRAM
     Route: 048
     Dates: start: 20230522, end: 20230526
  8. PHYTONADIONE [Concomitant]
     Active Substance: PHYTONADIONE
     Dosage: 10 MILLIGRAM
     Route: 042
     Dates: start: 20230522, end: 20230523
  9. FOLIC ACID [Concomitant]
     Active Substance: FOLIC ACID
     Dosage: 5 MILLIGRAM
     Route: 048
     Dates: start: 20230522, end: 20230526
  10. LORMETAZEPAM [Concomitant]
     Active Substance: LORMETAZEPAM
     Dosage: 1 MILLIGRAM
     Route: 048
     Dates: start: 20230522, end: 20230526
  11. OMEPRAZOLE [Concomitant]
     Active Substance: OMEPRAZOLE
     Dosage: UNK
     Route: 048
     Dates: start: 20230522, end: 20230620
  12. ONDANSETRON [Concomitant]
     Active Substance: ONDANSETRON
     Dosage: 8 MILLIGRAM
     Route: 042
     Dates: start: 20230522, end: 20230624
  13. ACETAMINOPHEN [Concomitant]
     Active Substance: ACETAMINOPHEN
     Dosage: 1000 MILLIGRAM
     Route: 042
     Dates: start: 20230522, end: 20230624
  14. CALCIUM POLYSTYRENE SULFONATE [Concomitant]
     Active Substance: CALCIUM POLYSTYRENE SULFONATE
     Dosage: 15 GRAM
     Route: 048
     Dates: start: 20230522, end: 20230526
  15. QUETIAPINE [Concomitant]
     Active Substance: QUETIAPINE
     Dosage: 12.5-25 MILLIGRAM
     Route: 048
     Dates: start: 20230522
  16. SULFAMETHOXAZOLE [Concomitant]
     Active Substance: SULFAMETHOXAZOLE
     Dosage: 800 MILLIGRAM
     Route: 048
     Dates: start: 20230522
  17. TRIMETHOPRIM [Concomitant]
     Active Substance: TRIMETHOPRIM
     Dosage: 160 MILLIGRAM
     Route: 048
     Dates: start: 20230522
  18. LACTULOSE [Concomitant]
     Active Substance: LACTULOSE
     Dosage: 10 GRAM
     Route: 048
     Dates: start: 20230522, end: 20230526
  19. FUROSEMIDE [Concomitant]
     Active Substance: FUROSEMIDE
     Dosage: 20-2000 MILLIGRAM
     Route: 042
     Dates: start: 20230524, end: 20230616
  20. METAMIZOLE [Concomitant]
     Active Substance: METAMIZOLE
     Dosage: 2000 MILLIGRAM
     Route: 042
     Dates: start: 20230524, end: 20230624
  21. COLISTIMETHATE SODIUM [Concomitant]
     Active Substance: COLISTIMETHATE SODIUM
     Dosage: 4500000 UNK
     Route: 042
     Dates: start: 20230525, end: 20230606
  22. LEVETIRACETAM [Concomitant]
     Active Substance: LEVETIRACETAM
     Dosage: 1000 MILLIGRAM AND 1G/12H
     Route: 042
     Dates: start: 20230526
  23. MOVICOL [Concomitant]
     Active Substance: POLYETHYLENE GLYCOL 3350\POTASSIUM CHLORIDE\SODIUM BICARBONATE\SODIUM CHLORIDE
     Dosage: 13.8-13.13 GRAM
     Route: 048
     Dates: start: 20230527, end: 20230624
  24. PANTOPRAZOLE [Concomitant]
     Active Substance: PANTOPRAZOLE
     Dosage: 40 MILLIGRAM
     Route: 042
     Dates: start: 20230526, end: 20230609
  25. DEXAMETHASONE [Concomitant]
     Active Substance: DEXAMETHASONE
     Dosage: 8 MILLIGRAM
     Route: 042
     Dates: start: 20230517
  26. MEROPENEM [Concomitant]
     Active Substance: MEROPENEM
     Dosage: 1000-2000 MILLIGRAM
     Route: 042
     Dates: start: 20230522, end: 20230622
  27. ISAVUCONAZOLE [Concomitant]
     Active Substance: ISAVUCONAZOLE
     Dosage: 200 MILLIGRAM
     Route: 048
     Dates: start: 20230523, end: 20230619
  28. HUMAN RED BLOOD CELL [Concomitant]
     Active Substance: HUMAN RED BLOOD CELL
     Dosage: UNK
     Dates: start: 20230524
  29. PLATELETS [Concomitant]
     Active Substance: HUMAN PLATELET, ALLOGENIC
     Dosage: UNK
     Dates: start: 20230523
  30. MOXIFLOXACIN [Concomitant]
     Active Substance: MOXIFLOXACIN
     Dosage: 0.25 MILLIGRAM
     Route: 047
     Dates: start: 20230525, end: 20230526
  31. AMPHOTERICIN B [Concomitant]
     Active Substance: AMPHOTERICIN B
     Dosage: 25 MILLIGRAM
     Route: 048
     Dates: start: 20230530, end: 20230608
  32. MAGNESIUM [Concomitant]
     Active Substance: MAGNESIUM
     Dosage: 200 MILLIGRAM
     Route: 048
     Dates: start: 20230607, end: 20230622
  33. CALCIUM CARBONATE [Concomitant]
     Active Substance: CALCIUM CARBONATE
     Dosage: 500 MILLIGRAM
     Route: 048
     Dates: start: 20230522

REACTIONS (1)
  - Immune effector cell-associated neurotoxicity syndrome [Recovered/Resolved]

NARRATIVE: CASE EVENT DATE: 20230608
